FAERS Safety Report 5738052-9 (Version None)
Quarter: 2008Q2

REPORT INFORMATION
  Report Type: 
  Country: None (occurrence: None)
  Receive Date: 20080508
  Receipt Date: 20080428
  Transmission Date: 20081010
  Serious: Yes (Other)
  Sender: FDA-Public Use
  Company Number: GXKR2008GB04002

PATIENT
  Age: 33 Year
  Sex: Female
  Weight: 74 kg

DRUGS (6)
  1. CITALOPRAM HYDROBROMIDE [Suspect]
     Indication: DEPRESSION
     Dosage: 10 MG, ORAL
     Route: 048
     Dates: start: 20070416, end: 20080101
  2. CLOTRIMAZOLE [Concomitant]
  3. CODEINE PHOSPHATE AND ACETAMINOPHEN [Concomitant]
  4. IBUPROFEN [Concomitant]
  5. POTASSIUM BICARBONATE (POTASSIUM BICARBONATE) [Concomitant]
  6. SODIUM ALGINATE (SODIUM ALGINATE) [Concomitant]

REACTIONS (3)
  - ABORTION INDUCED [None]
  - DRUG EXPOSURE DURING PREGNANCY [None]
  - MULTIPLE CONGENITAL ABNORMALITIES [None]
